FAERS Safety Report 11337434 (Version 1)
Quarter: 2015Q3

REPORT INFORMATION
  Report Type: Spontaneous
  Country: US (occurrence: US)
  Receive Date: 20150803
  Receipt Date: 20150803
  Transmission Date: 20151125
  Serious: Yes (Other)
  Sender: FDA-Public Use
  Company Number: US-ELI_LILLY_AND_COMPANY-US200905001811

PATIENT
  Sex: Male

DRUGS (3)
  1. RISPERIDONE. [Concomitant]
     Active Substance: RISPERIDONE
  2. ZYPREXA [Suspect]
     Active Substance: OLANZAPINE
     Dosage: 5 MG, UNK
  3. ZYPREXA [Suspect]
     Active Substance: OLANZAPINE
     Dosage: 10 MG, UNK

REACTIONS (2)
  - Neuroleptic malignant syndrome [Unknown]
  - Psychotic disorder [Unknown]
